FAERS Safety Report 15101590 (Version 4)
Quarter: 2019Q2

REPORT INFORMATION
  Report Type: Report from Study
  Country: JP (occurrence: JP)
  Receive Date: 20180703
  Receipt Date: 20190425
  Transmission Date: 20190711
  Serious: Yes (Hospitalization)
  Sender: FDA-Public Use
  Company Number: JP-JT-EVA201703026KERYXP-001

PATIENT
  Age: 86 Year
  Sex: Male
  Weight: 56 kg

DRUGS (23)
  1. RIONA [Suspect]
     Active Substance: FERRIC CITRATE ANHYDROUS
     Dosage: 250 MILLIGRAM, QD
     Route: 048
     Dates: start: 20161207, end: 20170121
  2. ALFACALCIDOL [Concomitant]
     Active Substance: ALFACALCIDOL
     Dosage: 0.25 MICROGRAM, QD
     Route: 048
     Dates: start: 20110523, end: 20161005
  3. HARNAL [Concomitant]
     Active Substance: TAMSULOSIN HYDROCHLORIDE
     Dosage: 0.2 MG, QD
     Route: 048
  4. RIONA [Suspect]
     Active Substance: FERRIC CITRATE ANHYDROUS
     Indication: HYPERPHOSPHATAEMIA
     Dosage: 750 MILLIGRAM, QD
     Route: 048
     Dates: start: 20160704, end: 20161025
  5. PARIET [Concomitant]
     Active Substance: RABEPRAZOLE SODIUM
     Indication: HYPERCHLORHYDRIA
     Dosage: 10 MILLIGRAM, QD
     Route: 048
  6. PICOSULFATE NA [Concomitant]
     Active Substance: SODIUM PICOSULFATE
     Dosage: UNK
     Route: 048
     Dates: start: 20161226, end: 20170128
  7. RIONA [Suspect]
     Active Substance: FERRIC CITRATE ANHYDROUS
     Dosage: 500 MILLIGRAM, QD
     Route: 048
     Dates: start: 20161026, end: 20161206
  8. FUROSEMIDE. [Concomitant]
     Active Substance: FUROSEMIDE
     Dosage: 40 MILLIGRAM, QD
     Route: 048
  9. MIRCERA [Concomitant]
     Active Substance: METHOXY POLYETHYLENE GLYCOL-EPOETIN BETA
     Dosage: 25 MICROGRAM, 4 DOSES IN 3 MONTHS
     Route: 065
  10. CARBOCISTEINE [Concomitant]
     Active Substance: CARBOCYSTEINE
     Dosage: 1000 MILLIGRAM, QD
     Route: 048
     Dates: start: 20110620, end: 20161025
  11. BIO-THREE [Concomitant]
     Active Substance: HERBALS
     Dosage: 2 DOSAGE FORM, QD
     Route: 048
     Dates: start: 20160509, end: 20161025
  12. MIRCERA [Concomitant]
     Active Substance: METHOXY POLYETHYLENE GLYCOL-EPOETIN BETA
     Dosage: 50 MICROGRAM, 2 DOSES IN 3 MONTHS
     Route: 065
  13. MIRCERA [Concomitant]
     Active Substance: METHOXY POLYETHYLENE GLYCOL-EPOETIN BETA
     Dosage: 50 MICROGRAM, Q6MO
     Route: 065
  14. MAGMITT [Concomitant]
     Active Substance: MAGNESIUM OXIDE
     Dosage: 500 MG, QD
     Route: 048
     Dates: start: 20120514, end: 20161225
  15. HIRUDOID [Concomitant]
     Active Substance: GLYCOSAMINOGLYCANS
     Dosage: UNK
     Route: 003
     Dates: start: 20160523, end: 20170125
  16. MIRCERA [Concomitant]
     Active Substance: METHOXY POLYETHYLENE GLYCOL-EPOETIN BETA
     Dosage: 75 MICROGRAM, 5 DOSES IN 6 MONTHS
     Route: 065
  17. FEBURIC [Concomitant]
     Active Substance: FEBUXOSTAT
     Dosage: 10 MILLIGRAM, QD
     Route: 048
     Dates: start: 20120118, end: 20161025
  18. AMBROXOL HYDROCHLORIDE [Concomitant]
     Active Substance: AMBROXOL HYDROCHLORIDE
     Dosage: 45 MG, QD
     Route: 048
  19. FEXOFENADINE HYDROCHLORIDE. [Concomitant]
     Active Substance: FEXOFENADINE HYDROCHLORIDE
     Dosage: 60 MG, QD
     Route: 048
  20. MIRCERA [Concomitant]
     Active Substance: METHOXY POLYETHYLENE GLYCOL-EPOETIN BETA
     Indication: NEPHROGENIC ANAEMIA
     Dosage: 50 MICROGRAM, 3 DOSES IN 3 MONTHS
     Route: 065
  21. MIRCERA [Concomitant]
     Active Substance: METHOXY POLYETHYLENE GLYCOL-EPOETIN BETA
     Dosage: 100 MICROGRAM, Q6MO
     Route: 065
  22. MIRCERA [Concomitant]
     Active Substance: METHOXY POLYETHYLENE GLYCOL-EPOETIN BETA
     Dosage: 25 MICROGRAM, Q6MO
     Route: 065
  23. NESP [Concomitant]
     Active Substance: DARBEPOETIN ALFA
     Indication: NEPHROGENIC ANAEMIA
     Dosage: 30 MICROGRAM, 2 DOSES IN 3 MONTHS
     Route: 065

REACTIONS (2)
  - Pneumonia aspiration [Recovered/Resolved]
  - Vomiting [Recovered/Resolved]

NARRATIVE: CASE EVENT DATE: 20170120
